FAERS Safety Report 16502626 (Version 1)
Quarter: 2019Q3

REPORT INFORMATION
  Report Type: Spontaneous
  Country: US (occurrence: US)
  Receive Date: 20190628
  Receipt Date: 20190628
  Transmission Date: 20191004
  Serious: Yes (Other)
  Sender: FDA-Public Use
  Company Number: None

PATIENT
  Age: 54 Year
  Sex: Female
  Weight: 60.33 kg

DRUGS (1)
  1. AIMOVIG [Suspect]
     Active Substance: ERENUMAB-AOOE
     Indication: MIGRAINE
     Dates: start: 20181125, end: 20190327

REACTIONS (6)
  - Chest pain [None]
  - Heart rate increased [None]
  - Dyspnoea [None]
  - Dizziness [None]
  - Blood pressure increased [None]
  - Product storage error [None]

NARRATIVE: CASE EVENT DATE: 20190420
